FAERS Safety Report 4679378-X (Version None)
Quarter: 2005Q2

REPORT INFORMATION
  Report Type: 
  Country: None (occurrence: None)
  Receive Date: 20050602
  Receipt Date: 20050521
  Transmission Date: 20051028
  Serious: Yes (Other)
  Sender: FDA-Public Use
  Company Number: GB-GLAXOSMITHKLINE-B0381870A

PATIENT
  Age: 62 Year
  Sex: Male
  Weight: 88.9 kg

DRUGS (5)
  1. REQUIP [Suspect]
     Indication: RESTLESS LEGS SYNDROME
     Route: 048
     Dates: start: 20050429
  2. MICROPIRIN [Concomitant]
     Dosage: 75MG PER DAY
     Route: 048
     Dates: start: 20031120
  3. TRAXAM [Concomitant]
     Route: 061
     Dates: start: 20031120
  4. PHYLLOCONTIN [Concomitant]
     Dosage: 450MG TWICE PER DAY
     Route: 048
     Dates: start: 20011214
  5. LANSOPRAZOLE [Concomitant]
     Dosage: 15MG IN THE MORNING
     Route: 048
     Dates: start: 20011214

REACTIONS (3)
  - CHAPPED LIPS [None]
  - MYALGIA [None]
  - SWELLING FACE [None]
